FAERS Safety Report 8474249-5 (Version None)
Quarter: 2012Q2

REPORT INFORMATION
  Report Type: 
  Country: None (occurrence: None)
  Receive Date: 20120628
  Receipt Date: 20120618
  Transmission Date: 20120825
  Serious: Yes (Hospitalization)
  Sender: FDA-Public Use
  Company Number: IT-MPIJNJ-2012-04092

PATIENT

DRUGS (4)
  1. DEXAMETHASONE [Suspect]
     Indication: MULTIPLE MYELOMA
     Dosage: 20 MG, UNK
     Route: 048
     Dates: start: 20120518
  2. CYCLOPHOSPHAMIDE [Suspect]
     Indication: MULTIPLE MYELOMA
     Dosage: 500 MG/M2, UNK
     Route: 042
     Dates: start: 20120518
  3. LEVOFLOXACIN [Concomitant]
     Indication: PNEUMONIA
     Dosage: UNK
     Dates: start: 20120518, end: 20120528
  4. VELCADE [Suspect]
     Indication: MULTIPLE MYELOMA
     Dosage: 1.9 MG/M2, UNK
     Route: 042
     Dates: start: 20120518

REACTIONS (3)
  - PYREXIA [None]
  - PULMONARY FIBROSIS [None]
  - ANAEMIA [None]
